FAERS Safety Report 7841655-9 (Version None)
Quarter: 2011Q4

REPORT INFORMATION
  Report Type: 
  Country: None (occurrence: None)
  Receive Date: 20111025
  Receipt Date: 20111019
  Transmission Date: 20120403
  Serious: Yes (Other)
  Sender: FDA-Public Use
  Company Number: US-VERTEX PHARMACEUTICALS INC.-AE-2011-001046

PATIENT
  Sex: Female
  Weight: 80 kg

DRUGS (12)
  1. ASPIRIN [Concomitant]
     Route: 048
  2. LORTAB [Concomitant]
  3. INCIVEK [Suspect]
     Indication: HEPATITIS C
     Dates: start: 20110811, end: 20110823
  4. AMBIEN [Concomitant]
     Route: 048
  5. LACTULOSE [Concomitant]
     Route: 048
  6. TRAMADOL HCL [Concomitant]
  7. PEGASYS [Concomitant]
     Indication: HEPATITIS C
     Dates: start: 20110811, end: 20110823
  8. RIBAVIRIN [Concomitant]
     Indication: HEPATITIS C
     Dates: start: 20110811, end: 20110823
  9. EXFORGE [Concomitant]
     Route: 048
  10. BENEFIBER [Concomitant]
  11. RIBAVIRIN [Concomitant]
     Dates: start: 20110811, end: 20110823
  12. NEXIUM [Concomitant]
     Route: 048

REACTIONS (6)
  - HEAT STROKE [None]
  - HYPOVOLAEMIA [None]
  - NEUTROPHIL COUNT DECREASED [None]
  - VOMITING [None]
  - WHITE BLOOD CELL COUNT DECREASED [None]
  - HAEMOGLOBIN DECREASED [None]
